FAERS Safety Report 9970669 (Version 1)
Quarter: 2014Q1

REPORT INFORMATION
  Report Type: Report from Study
  Country: PR (occurrence: PR)
  Receive Date: 20140306
  Receipt Date: 20140306
  Transmission Date: 20141002
  Serious: No
  Sender: FDA-Public Use
  Company Number: PR-ABBVIE-13P-131-1151011-00

PATIENT
  Age: 52 Year
  Sex: Female
  Weight: 98.06 kg

DRUGS (14)
  1. HUMIRA [Suspect]
     Indication: PSORIATIC ARTHROPATHY
     Route: 058
  2. HUMULIN N [Concomitant]
     Indication: DIABETES MELLITUS
     Route: 058
  3. HUMULIN R [Concomitant]
     Indication: DIABETES MELLITUS
     Route: 058
  4. ALDARA [Concomitant]
     Indication: PSORIATIC ARTHROPATHY
     Route: 048
  5. ATENOLOL [Concomitant]
     Indication: HYPERTENSION
     Route: 048
  6. COZAAR [Concomitant]
     Indication: HYPERTENSION
     Route: 048
  7. NORVASC [Concomitant]
     Indication: HYPERTENSION
     Route: 048
  8. SIMVASTATIN [Concomitant]
     Indication: BLOOD CHOLESTEROL
     Route: 048
  9. NEURONTIN [Concomitant]
     Indication: PAIN
     Route: 048
  10. CYMBALTA [Concomitant]
     Indication: PAIN
     Route: 048
  11. METFORMIN [Concomitant]
     Indication: DIABETES MELLITUS
     Route: 048
  12. CLONOPIN [Concomitant]
     Indication: DEPRESSION
     Route: 048
  13. ZOLOFT [Concomitant]
     Indication: DEPRESSION
     Route: 048
  14. METHOTREXATE [Concomitant]
     Indication: PSORIATIC ARTHROPATHY

REACTIONS (9)
  - Ligament sprain [Not Recovered/Not Resolved]
  - Carpal tunnel syndrome [Not Recovered/Not Resolved]
  - Pain [Not Recovered/Not Resolved]
  - Fall [Not Recovered/Not Resolved]
  - Muscle spasms [Not Recovered/Not Resolved]
  - Hypoaesthesia [Recovering/Resolving]
  - Candida infection [Not Recovered/Not Resolved]
  - Headache [Not Recovered/Not Resolved]
  - Local swelling [Not Recovered/Not Resolved]
